FAERS Safety Report 22022822 (Version 1)
Quarter: 2023Q1

REPORT INFORMATION
  Report Type: Report from Study
  Country: KR (occurrence: KR)
  Receive Date: 20230222
  Receipt Date: 20230222
  Transmission Date: 20230418
  Serious: Yes (Hospitalization)
  Sender: FDA-Public Use
  Company Number: KR-MIRATI-MT2023CT03518

PATIENT

DRUGS (23)
  1. ADAGRASIB [Suspect]
     Active Substance: ADAGRASIB
     Indication: Non-small cell lung cancer
     Dosage: 600 MG, BID
     Route: 048
     Dates: start: 20220922
  2. ADAGRASIB [Suspect]
     Active Substance: ADAGRASIB
     Dosage: 400 MG, BID
     Route: 048
     Dates: end: 20230125
  3. AZILECT [Concomitant]
     Active Substance: RASAGILINE MESYLATE
     Indication: Parkinson^s disease
     Dosage: 1 MG, QD
     Route: 048
     Dates: start: 20200731
  4. PERKIN 25-100 [Concomitant]
     Indication: Parkinson^s disease
     Dosage: 1 DF, TID
     Route: 048
     Dates: start: 20210129
  5. REQUIP PD [Concomitant]
     Indication: Parkinson^s disease
     Dosage: 4 MG, TID
     Route: 048
     Dates: start: 20210507
  6. CHOLINE ALFOSCERATE [Concomitant]
     Active Substance: CHOLINE ALFOSCERATE
     Indication: Parkinson^s disease
     Dosage: 400 MG, TID
     Dates: start: 20210902
  7. PLAVIX [Concomitant]
     Active Substance: CLOPIDOGREL BISULFATE
     Indication: Acute myocardial infarction
     Dosage: 75 MG, QD
     Route: 048
     Dates: start: 20210507
  8. NEUSTATIN R [Concomitant]
     Indication: Acute myocardial infarction
     Dosage: 1 DF, QD
     Dates: start: 20200729
  9. ASPIRIN [Concomitant]
     Active Substance: ASPIRIN
     Indication: Acute myocardial infarction
     Dosage: 100 MG, QD
     Route: 048
     Dates: start: 20191113
  10. NAFTOPIDIL [Concomitant]
     Active Substance: NAFTOPIDIL
     Indication: Acute myocardial infarction
     Dosage: 50 MG, QD
     Route: 048
     Dates: start: 20210507
  11. AVODART [Concomitant]
     Active Substance: DUTASTERIDE
     Indication: Acute myocardial infarction
     Dosage: 0.5 MG, QD
     Route: 048
     Dates: start: 20210513
  12. HARNAL [Concomitant]
     Active Substance: TAMSULOSIN HYDROCHLORIDE
     Indication: Benign prostatic hyperplasia
     Dosage: 0.2 MG, QD
     Route: 048
     Dates: start: 20191113
  13. TENELIGLIPTIN [Concomitant]
     Active Substance: TENELIGLIPTIN
     Indication: Diabetes mellitus
     Dosage: 20 MG, QD
     Route: 048
     Dates: start: 20191113
  14. GLICLAZIDE [Concomitant]
     Active Substance: GLICLAZIDE
     Indication: Diabetes mellitus
     Dosage: 30 MG, QD
     Route: 048
     Dates: start: 20200210
  15. GLICLAZIDE [Concomitant]
     Active Substance: GLICLAZIDE
     Dosage: 60 MG, QD
     Route: 048
     Dates: start: 20220404
  16. GLUCOPHAGE XR [Concomitant]
     Active Substance: METFORMIN HYDROCHLORIDE
     Indication: Diabetes mellitus
     Dosage: 1000 MG, QD
     Route: 048
     Dates: start: 20220901
  17. FEBUXOSTAT [Concomitant]
     Active Substance: FEBUXOSTAT
     Indication: Gout
     Dosage: 80 MG, QD
     Route: 048
     Dates: start: 20180403, end: 20230115
  18. FEBUXOSTAT [Concomitant]
     Active Substance: FEBUXOSTAT
     Dosage: 40 MG, QD
     Route: 048
     Dates: start: 20230116
  19. SYNATURA [Concomitant]
     Indication: Cough
     Dosage: 15 ML, TID
     Route: 048
     Dates: start: 20221006
  20. ACETYLCYSTEINE [Concomitant]
     Active Substance: ACETYLCYSTEINE
     Indication: Cough
     Dosage: 200 MG, TID
     Route: 048
     Dates: start: 20221006
  21. ACETAMINOPHEN [Concomitant]
     Active Substance: ACETAMINOPHEN
     Indication: Chest pain
     Dosage: 650 MG, TID
     Route: 048
     Dates: start: 20220901
  22. HYALURONATE SODIUM [Concomitant]
     Active Substance: HYALURONATE SODIUM
     Indication: Eye pain
     Dosage: 10 ML (0.15%), QD
     Route: 047
     Dates: start: 20220901
  23. NORZYME [Concomitant]
     Indication: Amylase increased
     Dosage: 40,000, TID
     Route: 048
     Dates: start: 20230126

REACTIONS (2)
  - Amylase increased [Not Recovered/Not Resolved]
  - Lipase increased [Not Recovered/Not Resolved]

NARRATIVE: CASE EVENT DATE: 20230213
